FAERS Safety Report 21837903 (Version 1)
Quarter: 2023Q1

REPORT INFORMATION
  Report Type: Spontaneous
  Country: RS (occurrence: RS)
  Receive Date: 20230109
  Receipt Date: 20230109
  Transmission Date: 20230418
  Serious: Yes (Other)
  Sender: FDA-Public Use
  Company Number: RS-BAXTER-2023BAX009955

PATIENT
  Age: 23 Year
  Sex: Female

DRUGS (7)
  1. IFOSFAMIDE [Suspect]
     Active Substance: IFOSFAMIDE
     Indication: Ewing^s sarcoma
     Dosage: VIDE
     Route: 065
  2. VINCRISTINE [Suspect]
     Active Substance: VINCRISTINE
     Indication: Ewing^s sarcoma
     Dosage: VIDE
     Route: 065
  3. ETOPOSIDE [Suspect]
     Active Substance: ETOPOSIDE
     Indication: Ewing^s sarcoma
     Dosage: VIDE
     Route: 065
  4. DOXORUBICIN [Suspect]
     Active Substance: DOXORUBICIN
     Indication: Ewing^s sarcoma
     Dosage: VIDE
     Route: 065
  5. LOMUSTINE [Concomitant]
     Active Substance: LOMUSTINE
     Dosage: VI CYCLES OF PECKER PROTOCOL (CCNU)
     Route: 065
  6. CISPLATIN [Concomitant]
     Active Substance: CISPLATIN
     Dosage: VI CYCLES OF PECKER PROTOCOL (CDDP)
     Route: 065
  7. VINCRISTINE [Concomitant]
     Active Substance: VINCRISTINE
     Dosage: VI CYCLES OF PECKER PROTOCOL (VCR)
     Route: 065

REACTIONS (3)
  - Metastases to lung [Unknown]
  - Disease progression [Unknown]
  - Respiration abnormal [Unknown]
